FAERS Safety Report 23821316 (Version 2)
Quarter: 2024Q2

REPORT INFORMATION
  Report Type: Spontaneous
  Country: US (occurrence: US)
  Receive Date: 20240506
  Receipt Date: 20240530
  Transmission Date: 20240716
  Serious: No
  Sender: FDA-Public Use
  Company Number: US-PFIZER INC-202400100195

PATIENT
  Age: 63 Year
  Sex: Female

DRUGS (1)
  1. IBRANCE [Suspect]
     Active Substance: PALBOCICLIB
     Dosage: 125 MG (1 CAPSULE), DAILY FOR 21 DAYS FOLLOWED BY 7 DAYS OF REST
     Route: 048
     Dates: start: 20240415

REACTIONS (6)
  - Full blood count abnormal [Not Recovered/Not Resolved]
  - Fatigue [Recovering/Resolving]
  - Aphthous ulcer [Recovered/Resolved]
  - Insomnia [Not Recovered/Not Resolved]
  - Cough [Recovering/Resolving]
  - White blood cell count decreased [Recovering/Resolving]
